FAERS Safety Report 15331464 (Version 2)
Quarter: 2018Q4

REPORT INFORMATION
  Report Type: Spontaneous
  Country: US (occurrence: US)
  Receive Date: 20180829
  Receipt Date: 20181116
  Transmission Date: 20190204
  Serious: No
  Sender: FDA-Public Use
  Company Number: US-MYLANLABS-2018M1032936

PATIENT
  Age: 63 Year
  Sex: Female
  Weight: 49.44 kg

DRUGS (4)
  1. FLUOXETINE MYLAN [Suspect]
     Active Substance: FLUOXETINE HYDROCHLORIDE
     Indication: PRODUCT USED FOR UNKNOWN INDICATION
     Dosage: 20 MG, QD
     Route: 065
     Dates: start: 201705, end: 201705
  2. TIROSINT SOL [Concomitant]
     Dosage: 88 ?G, 3 DAYS A WEEK
  3. CYTOMEL [Concomitant]
     Active Substance: LIOTHYRONINE SODIUM
     Indication: THYROID DISORDER
  4. TIROSINT SOL [Concomitant]
     Indication: THYROID DISORDER
     Dosage: 75 ?G, 5 DAYS A WEEK

REACTIONS (2)
  - Palpitations [Recovered/Resolved]
  - Adverse event [Recovered/Resolved]

NARRATIVE: CASE EVENT DATE: 201705
